FAERS Safety Report 10649789 (Version 2)
Quarter: 2014Q4

REPORT INFORMATION
  Report Type: Report from Study
  Country: JP (occurrence: JP)
  Receive Date: 20141212
  Receipt Date: 20141212
  Transmission Date: 20150529
  Serious: Yes (Hospitalization, Other)
  Sender: FDA-Public Use
  Company Number: JP-CELGENE-087-21880-11012560

PATIENT
  Age: 71 Year
  Sex: Male
  Weight: 54.2 kg

DRUGS (11)
  1. GURAK [Concomitant]
     Indication: MYELODYSPLASTIC SYNDROME
     Dosage: 45 MILLIGRAM
     Route: 048
  2. PRIMOBOLAN-DEPOT [Concomitant]
     Active Substance: METHENOLONE ENANTHATE
     Indication: MYELODYSPLASTIC SYNDROME
     Dosage: 10 MILLIGRAM
     Route: 048
  3. OMEPRAL [Concomitant]
     Active Substance: OMEPRAZOLE
     Indication: MYELODYSPLASTIC SYNDROME
     Dosage: 20 MILLIGRAM
     Route: 048
  4. EXJADE [Concomitant]
     Active Substance: DEFERASIROX
     Indication: IRON OVERLOAD
     Dosage: 1000 MILLIGRAM
     Route: 048
  5. DIGOSIN [Concomitant]
     Active Substance: DIGOXIN
     Indication: ANGINA PECTORIS
     Dosage: .2 GRAM
     Route: 048
  6. REVLIMID [Suspect]
     Active Substance: LENALIDOMIDE
     Dosage: ONCE PER TWO?DAYS
     Route: 048
     Dates: start: 20110809, end: 20110829
  7. ITOROL [Concomitant]
     Active Substance: ISOSORBIDE MONONITRATE
     Indication: ANGINA PECTORIS
     Dosage: 40 MILLIGRAM
     Route: 048
  8. REVLIMID [Suspect]
     Active Substance: LENALIDOMIDE
     Indication: 5Q MINUS SYNDROME
     Route: 048
     Dates: start: 20100913, end: 20101003
  9. CRAVIT [Concomitant]
     Active Substance: LEVOFLOXACIN
     Indication: PROPHYLAXIS
     Dosage: 500 MILLIGRAM
     Route: 048
     Dates: start: 20100918, end: 20100924
  10. REVLIMID [Suspect]
     Active Substance: LENALIDOMIDE
     Route: 048
     Dates: start: 20120615, end: 20120627
  11. BAYASPIRIN [Concomitant]
     Active Substance: ASPIRIN
     Indication: ANGINA PECTORIS
     Dosage: 100 MILLIGRAM
     Route: 048

REACTIONS (5)
  - Eosinophil count increased [Recovered/Resolved]
  - Dermatitis allergic [Not Recovered/Not Resolved]
  - Thrombocytopenia [Recovered/Resolved]
  - Neutropenia [Recovered/Resolved]
  - Blood immunoglobulin E increased [Not Recovered/Not Resolved]

NARRATIVE: CASE EVENT DATE: 20100916
